FAERS Safety Report 19289387 (Version 1)
Quarter: 2021Q2

REPORT INFORMATION
  Report Type: Spontaneous
  Country: US (occurrence: US)
  Receive Date: 20210521
  Receipt Date: 20210521
  Transmission Date: 20210717
  Serious: No
  Sender: FDA-Public Use
  Company Number: US-UPSHER-SMITH LABORATORIES, LLC-2020USL00539

PATIENT
  Age: 62 Year
  Sex: Female
  Weight: 78.46 kg

DRUGS (19)
  1. CALAN SR [Concomitant]
     Active Substance: VERAPAMIL HYDROCHLORIDE
     Dosage: UNK, 1X/DAY (MORNING)
  2. TOPROL XL [Concomitant]
     Active Substance: METOPROLOL SUCCINATE
     Dosage: 25 MG, 1X/DAY (EVENING)
  3. TORSEMIDE. [Concomitant]
     Active Substance: TORSEMIDE
  4. VITAMIN B COMPLEX [Concomitant]
     Active Substance: CYANOCOBALAMIN\DEXPANTHENOL\NIACINAMIDE\PYRIDOXINE HYDROCHLORIDE\RIBOFLAVIN 5^-PHOSPHATE SODIUM\THIAMINE HYDROCHLORIDE\VITAMIN B COMPLEX
  5. VERAPAMIL TIME?RELEASE [Concomitant]
     Dosage: 120 MG, 1X/DAY
  6. KLOR?CON [Suspect]
     Active Substance: POTASSIUM CHLORIDE
     Dosage: 10 MEQ, 1X/DAY
     Route: 048
     Dates: start: 2020
  7. KLOR?CON [Suspect]
     Active Substance: POTASSIUM CHLORIDE
     Indication: ELECTROLYTE SUBSTITUTION THERAPY
     Dosage: 10 MEQ, 1X/DAY
     Route: 048
     Dates: start: 202005, end: 2020
  8. KYOLIC H GARLIC [Concomitant]
  9. CAYENNE [Concomitant]
     Active Substance: CAPSICUM\HERBALS
  10. OMEGA 3, 6, 9 [Concomitant]
  11. TRICOR [Concomitant]
     Active Substance: FENOFIBRATE
     Dosage: 45 MG, 1X/DAY (MORNING)
  12. XARELTO [Concomitant]
     Active Substance: RIVAROXABAN
     Dosage: 20 MG, 1X/DAY (EVENING)
  13. COQ?10 200 WITH VITAMIN E, ZINC [Concomitant]
  14. VITAMIN D3 [Concomitant]
     Active Substance: CHOLECALCIFEROL
  15. TURMERIC [Concomitant]
     Active Substance: HERBALS\TURMERIC
  16. VITAMIN C WITH FLAVONOIDS [Concomitant]
  17. ROSE HIPS [Concomitant]
  18. CARDIO 360 (METAGENICS; SELENIUM AND EVERY OTHER VITAMIN) [Concomitant]
  19. VALIUM [Concomitant]
     Active Substance: DIAZEPAM
     Dosage: 10 MG, AS NEEDED

REACTIONS (6)
  - Diarrhoea [Recovered/Resolved]
  - Product residue present [Unknown]
  - Abdominal discomfort [Unknown]
  - Malaise [Unknown]
  - Product dispensing error [Recovered/Resolved]
  - Product administration error [Recovered/Resolved]

NARRATIVE: CASE EVENT DATE: 2020
